FAERS Safety Report 23304637 (Version 1)
Quarter: 2023Q4

REPORT INFORMATION
  Report Type: Spontaneous
  Country: US (occurrence: US)
  Receive Date: 20231218
  Receipt Date: 20231218
  Transmission Date: 20240110
  Serious: No
  Sender: FDA-Public Use
  Company Number: US-ABBVIE-5537826

PATIENT
  Sex: Male

DRUGS (1)
  1. HUMIRA [Suspect]
     Active Substance: ADALIMUMAB
     Indication: Product used for unknown indication
     Route: 058

REACTIONS (6)
  - Unevaluable event [Unknown]
  - Psoriasis [Unknown]
  - Rash [Unknown]
  - Hyperkalaemia [Unknown]
  - Urticaria [Unknown]
  - Miliaria [Unknown]

NARRATIVE: CASE EVENT DATE: 20220101
